FAERS Safety Report 9296771 (Version 1)
Quarter: 2013Q2

REPORT INFORMATION
  Report Type: Spontaneous
  Country: BE (occurrence: BE)
  Receive Date: 20130517
  Receipt Date: 20130517
  Transmission Date: 20140414
  Serious: Yes (Other)
  Sender: FDA-Public Use
  Company Number: BE-JNJFOC-20130504593

PATIENT
  Age: 62 Year
  Sex: Male

DRUGS (3)
  1. INFLIXIMAB, RECOMBINANT [Suspect]
     Indication: CROHN^S DISEASE
     Route: 042
     Dates: start: 201005
  2. INFLIXIMAB, RECOMBINANT [Suspect]
     Indication: CROHN^S DISEASE
     Dosage: 3RD INFUSION
     Route: 042
     Dates: start: 201008, end: 201012
  3. HUMIRA [Suspect]
     Indication: CROHN^S DISEASE
     Dosage: RECEIVED A TOTAL OF 5 INJECTIONS
     Route: 058
     Dates: start: 201105, end: 2011

REACTIONS (3)
  - Ageusia [Recovered/Resolved]
  - Decreased appetite [Unknown]
  - Weight decreased [Unknown]
